FAERS Safety Report 8038291-0 (Version None)
Quarter: 2012Q1

REPORT INFORMATION
  Report Type: 
  Country: None (occurrence: None)
  Receive Date: 20120111
  Receipt Date: 20111207
  Transmission Date: 20120608
  Serious: No
  Sender: FDA-Public Use
  Company Number: US-AMGEN-USASP2011065255

PATIENT
  Age: 58 Year
  Sex: Female

DRUGS (3)
  1. METHOTREXATE [Concomitant]
     Dosage: 1 MG, UNK
     Dates: start: 20090601
  2. ENBREL [Suspect]
     Indication: RHEUMATOID ARTHRITIS
     Dosage: 50 MG, QWK
     Dates: start: 20111202
  3. PLAQUENIL [Concomitant]
     Dosage: 1 MG, UNK
     Dates: start: 20100301

REACTIONS (3)
  - JOINT SWELLING [None]
  - FLUSHING [None]
  - GENERALISED OEDEMA [None]
